FAERS Safety Report 8152522-8 (Version None)
Quarter: 2012Q1

REPORT INFORMATION
  Report Type: 
  Country: None (occurrence: None)
  Receive Date: 20120215
  Receipt Date: 20120206
  Transmission Date: 20120608
  Serious: Yes (Death, Hospitalization, Disabling, Other)
  Sender: FDA-Public Use
  Company Number: ACO_29298_2012

PATIENT
  Age: 61 Year
  Sex: Female

DRUGS (15)
  1. TOPAMAX [Concomitant]
  2. BACLOFEN [Concomitant]
  3. LIPITOR [Concomitant]
  4. ACIPHEX [Concomitant]
  5. LORAZEPAM [Concomitant]
  6. NITROFURAN (NITROFURANTOIN) [Concomitant]
  7. ERGOCALCIFEROL [Concomitant]
  8. BACLOFEN [Concomitant]
  9. CITALOPRAM HYDROBROMIDE [Concomitant]
  10. METHADONE HCL [Concomitant]
  11. CLONAZEPAM [Concomitant]
  12. LAXATIVES [Concomitant]
  13. AMPYRA [Suspect]
     Indication: GAIT DISTURBANCE
     Dosage: 10 MG, BID ORAL
     Route: 048
     Dates: start: 20101001, end: 20100101
  14. AMPYRA [Suspect]
     Indication: BREAST CANCER
     Dosage: 10 MG, BID ORAL
     Route: 048
     Dates: start: 20101001, end: 20100101
  15. GABAPENTIN [Concomitant]

REACTIONS (9)
  - BREAST CANCER [None]
  - PYREXIA [None]
  - MULTIPLE SCLEROSIS [None]
  - DYSPHAGIA [None]
  - URINARY INCONTINENCE [None]
  - CONDITION AGGRAVATED [None]
  - CYSTITIS [None]
  - ABASIA [None]
  - EATING DISORDER [None]
